FAERS Safety Report 17248374 (Version 1)
Quarter: 2020Q1

REPORT INFORMATION
  Report Type: Spontaneous
  Country: US (occurrence: US)
  Receive Date: 20200108
  Receipt Date: 20200108
  Transmission Date: 20200409
  Serious: Yes (Other)
  Sender: FDA-Public Use
  Company Number: US-LEADING PHARMA LLC-US-2019LEALIT00029

PATIENT

DRUGS (2)
  1. NITROGLYCERINE [Concomitant]
     Active Substance: NITROGLYCERIN
  2. FUROSEMIDE TABLETS USP [Suspect]
     Active Substance: FUROSEMIDE

REACTIONS (1)
  - Drug ineffective [Unknown]
